FAERS Safety Report 12174689 (Version 1)
Quarter: 2016Q1

REPORT INFORMATION
  Report Type: Other
  Country: KR (occurrence: KR)
  Receive Date: 20160314
  Receipt Date: 20160314
  Transmission Date: 20160526
  Serious: Yes (Death, Other)
  Sender: FDA-Public Use
  Company Number: KR-AMPHASTAR PHARMACEUTICALS, INC.-1048987

PATIENT
  Age: 36 Year
  Sex: Female

DRUGS (5)
  1. WARFARIN SODIUM. [Suspect]
     Active Substance: WARFARIN SODIUM
  2. ASPIRIN. [Concomitant]
     Active Substance: ASPIRIN
  3. LOW MOLECULAR WEIGHT HEPARIN; ENOXAPARIN SODIUM [Suspect]
     Active Substance: ENOXAPARIN SODIUM
     Indication: INTRACARDIAC THROMBUS
     Route: 058
  4. ESOMEPRAZOLE SODIUM. [Concomitant]
     Active Substance: ESOMEPRAZOLE SODIUM
  5. UROKINASE INFUSION FOR CDT [Concomitant]
     Active Substance: UROKINASE

REACTIONS (8)
  - Heparin-induced thrombocytopenia [Fatal]
  - Haemoptysis [Fatal]
  - Hypotension [Fatal]
  - Death [Fatal]
  - Pulmonary embolism [Fatal]
  - Dyspnoea [Fatal]
  - Pulmonary haemorrhage [Fatal]
  - Pulmonary oedema [Fatal]
